FAERS Safety Report 8432842-X (Version None)
Quarter: 2012Q2

REPORT INFORMATION
  Report Type: 
  Country: None (occurrence: None)
  Receive Date: 20120323
  Receipt Date: 20110711
  Transmission Date: 20120825
  Serious: Yes (Hospitalization)
  Sender: FDA-Public Use
  Company Number: 163-21880-11071241

PATIENT
  Age: 69 Year
  Sex: Female
  Weight: 85.7298 kg

DRUGS (10)
  1. PANTOPRAZOLE [Concomitant]
  2. MULTIVITAMIN [Concomitant]
  3. REVLIMID [Suspect]
     Dosage: 25 MG, 1 IN 1 D, PO, 15 MG, 1 IN 1 D, PO, 10 MG, 1 IN 1 D, PO, 5 MG, DAILY X 21 DAYS, 7 DAYS OFF, PO
     Route: 048
     Dates: start: 20100601
  4. REVLIMID [Suspect]
     Dosage: 25 MG, 1 IN 1 D, PO, 15 MG, 1 IN 1 D, PO, 10 MG, 1 IN 1 D, PO, 5 MG, DAILY X 21 DAYS, 7 DAYS OFF, PO
     Route: 048
     Dates: start: 20090801
  5. REVLIMID [Suspect]
     Dosage: 25 MG, 1 IN 1 D, PO, 15 MG, 1 IN 1 D, PO, 10 MG, 1 IN 1 D, PO, 5 MG, DAILY X 21 DAYS, 7 DAYS OFF, PO
     Route: 048
     Dates: start: 20090410
  6. REVLIMID [Suspect]
     Dosage: 25 MG, 1 IN 1 D, PO, 15 MG, 1 IN 1 D, PO, 10 MG, 1 IN 1 D, PO, 5 MG, DAILY X 21 DAYS, 7 DAYS OFF, PO
     Route: 048
     Dates: start: 20101201
  7. LISINOPRIL [Concomitant]
  8. CELEBREX [Concomitant]
  9. CLONAZEPAM [Concomitant]
  10. ACYCLOVIR [Concomitant]

REACTIONS (1)
  - PNEUMONIA [None]
